FAERS Safety Report 24192385 (Version 1)
Quarter: 2024Q3

REPORT INFORMATION
  Report Type: Report from Study
  Country: IT (occurrence: None)
  Receive Date: 20240809
  Receipt Date: 20240809
  Transmission Date: 20241017
  Serious: Yes (Other)
  Sender: ASTRAZENECA
  Company Number: 2022A087266

PATIENT
  Age: 20 Year
  Sex: Male
  Weight: 57 kg

DRUGS (1)
  1. SELUMETINIB [Suspect]
     Active Substance: SELUMETINIB
     Indication: Neurofibroma
     Route: 048
     Dates: start: 20211021, end: 20220117

REACTIONS (2)
  - Cardiotoxicity [Recovering/Resolving]
  - Ejection fraction decreased [Recovering/Resolving]

NARRATIVE: CASE EVENT DATE: 20220117
